FAERS Safety Report 21304861 (Version 1)
Quarter: 2022Q3

REPORT INFORMATION
  Report Type: Spontaneous
  Country: CN (occurrence: CN)
  Receive Date: 20220907
  Receipt Date: 20220907
  Transmission Date: 20221026
  Serious: Yes (Hospitalization, Other)
  Sender: FDA-Public Use
  Company Number: CN-GLAXOSMITHKLINE-CNCH2022APC031997

PATIENT

DRUGS (3)
  1. DICLOFENAC SODIUM [Suspect]
     Active Substance: DICLOFENAC SODIUM
     Indication: Gout
     Dosage: 50 G, BID
     Route: 048
     Dates: start: 20190401, end: 20220818
  2. DEXAMETHASONE ACETATE [Suspect]
     Active Substance: DEXAMETHASONE ACETATE
     Indication: Gout
     Dosage: 0.75 MG, QD
     Route: 048
     Dates: start: 20190401, end: 20220818
  3. FEBUXOSTAT [Suspect]
     Active Substance: FEBUXOSTAT
     Indication: Blood uric acid decreased
     Dosage: 40 MG, QD
     Route: 048
     Dates: start: 20190401, end: 20220818

REACTIONS (14)
  - Upper gastrointestinal haemorrhage [Recovering/Resolving]
  - Melaena [Recovering/Resolving]
  - Faeces discoloured [Recovered/Resolved]
  - Abdominal pain upper [Recovering/Resolving]
  - Asthenia [Recovering/Resolving]
  - Dry throat [Recovering/Resolving]
  - Occult blood [Recovering/Resolving]
  - Anaemia [Recovering/Resolving]
  - General physical health deterioration [Recovering/Resolving]
  - Malnutrition [Recovering/Resolving]
  - Gastric ulcer [Recovering/Resolving]
  - Reflux gastritis [Recovering/Resolving]
  - Product use in unapproved indication [Unknown]
  - Product use issue [Unknown]

NARRATIVE: CASE EVENT DATE: 20190401
